FAERS Safety Report 5582782-9 (Version None)
Quarter: 2008Q1

REPORT INFORMATION
  Report Type: 
  Country: None (occurrence: None)
  Receive Date: 20080107
  Receipt Date: 20071226
  Transmission Date: 20080703
  Serious: Yes (Other)
  Sender: FDA-Public Use
  Company Number: US-TYCO HEALTHCARE/MALLINCKRODT-T200701600

PATIENT

DRUGS (2)
  1. LIQUID BAROSPERSE [Suspect]
     Indication: BARIUM MEAL
     Dosage: UNK, SINGLE
  2. LIQUID BAROSPERSE [Suspect]
     Dosage: UNK, SINGLE

REACTIONS (2)
  - COLONIC OBSTRUCTION [None]
  - DRUG CLEARANCE DECREASED [None]
